FAERS Safety Report 5464315-0 (Version None)
Quarter: 2007Q3

REPORT INFORMATION
  Report Type: 
  Country: None (occurrence: None)
  Receive Date: 20070921
  Receipt Date: 20070913
  Transmission Date: 20080115
  Serious: Yes (Other)
  Sender: FDA-Public Use
  Company Number: US-ELI_LILLY_AND_COMPANY-US200706002570

PATIENT
  Age: 68 Year
  Sex: Female

DRUGS (15)
  1. METFORMIN [Concomitant]
     Dosage: UNK, UNKNOWN
  2. GLYBURIDE [Concomitant]
     Dosage: UNK, UNKNOWN
  3. AVANDIA [Concomitant]
     Dosage: UNK, UNKNOWN
  4. AVALIDE [Concomitant]
     Dosage: UNK, UNKNOWN
  5. NORVASC [Concomitant]
     Dosage: UNK, UNKNOWN
  6. LIPITOR [Concomitant]
     Dosage: UNK, UNKNOWN
  7. ATENOLOL [Concomitant]
     Dosage: UNK, UNKNOWN
  8. HUMALOG [Concomitant]
     Dosage: UNK, UNKNOWN
  9. LANTUS [Concomitant]
     Dosage: UNK, UNKNOWN
  10. FOLIC ACID [Concomitant]
     Dosage: UNK, UNKNOWN
  11. CALCIUM [Concomitant]
     Dosage: UNK, UNKNOWN
  12. VITAMIN CAP [Concomitant]
     Dosage: UNK, UNKNOWN
  13. BYETTA [Suspect]
     Indication: TYPE 2 DIABETES MELLITUS
     Dosage: 5 UG, 2/D
     Route: 058
     Dates: start: 20060101, end: 20060101
  14. BYETTA [Suspect]
     Dosage: 10 UG, 2/D
     Route: 058
     Dates: start: 20060101
  15. ASPIRIN [Concomitant]
     Dosage: 81 MG, DAILY (1/D)
     Route: 048

REACTIONS (2)
  - BREAST CANCER IN SITU [None]
  - CHILLS [None]
